FAERS Safety Report 15984492 (Version 1)
Quarter: 2019Q1

REPORT INFORMATION
  Report Type: Spontaneous
  Country: US (occurrence: US)
  Receive Date: 20190219
  Receipt Date: 20190219
  Transmission Date: 20190418
  Serious: Yes (Disabling, Other)
  Sender: FDA-Public Use
  Company Number: None

PATIENT
  Age: 57 Year
  Sex: Female
  Weight: 99 kg

DRUGS (1)
  1. EMGALITY [Suspect]
     Active Substance: GALCANEZUMAB-GNLM
     Indication: MIGRAINE
     Dosage: ?          OTHER FREQUENCY:LOADING DOSE;?
     Route: 030
     Dates: start: 20190131, end: 20190131

REACTIONS (5)
  - Somnolence [None]
  - Dizziness [None]
  - Visual impairment [None]
  - Diabetic ketoacidosis [None]
  - Fatigue [None]

NARRATIVE: CASE EVENT DATE: 20190131
